FAERS Safety Report 5564819-6 (Version None)
Quarter: 2007Q4

REPORT INFORMATION
  Report Type: 
  Country: None (occurrence: None)
  Receive Date: 20071214
  Receipt Date: 20071214
  Transmission Date: 20080405
  Serious: Yes (Disabling, Other)
  Sender: FDA-Public Use
  Company Number: None

PATIENT
  Age: 26 Year
  Sex: Female
  Weight: 52.1637 kg

DRUGS (1)
  1. CYMBALTA [Suspect]
     Indication: DEPRESSION
     Dosage: 30 ONE TIME DAILY PO
     Route: 048
     Dates: start: 20070416, end: 20071125

REACTIONS (7)
  - CHILLS [None]
  - DISTURBANCE IN ATTENTION [None]
  - DIZZINESS [None]
  - INSOMNIA [None]
  - VISUAL DISTURBANCE [None]
  - VOMITING [None]
  - WITHDRAWAL SYNDROME [None]
